FAERS Safety Report 8336206-9 (Version None)
Quarter: 2012Q2

REPORT INFORMATION
  Report Type: 
  Country: None (occurrence: None)
  Receive Date: 20120501
  Receipt Date: 20120427
  Transmission Date: 20120825
  Serious: Yes (Life-Threatening, Hospitalization, Other)
  Sender: FDA-Public Use
  Company Number: ADR-2011-11667

PATIENT
  Sex: Female

DRUGS (2)
  1. BACLOFEN [Suspect]
     Indication: MUSCLE SPASTICITY
     Dosage: SEE IMAGE
     Route: 037
  2. BACLOFEN [Suspect]
     Indication: SPINAL CORD INJURY
     Dosage: SEE IMAGE
     Route: 037

REACTIONS (5)
  - MENINGITIS [None]
  - MUSCLE SPASTICITY [None]
  - CONVULSION [None]
  - BRAIN OEDEMA [None]
  - MENTAL STATUS CHANGES [None]
